FAERS Safety Report 25455940 (Version 1)
Quarter: 2025Q2

REPORT INFORMATION
  Report Type: Report from Study
  Country: IT (occurrence: IT)
  Receive Date: 20250619
  Receipt Date: 20250619
  Transmission Date: 20250716
  Serious: Yes (Hospitalization)
  Sender: ALNYLAM PHARMACEUTICALS
  Company Number: IT-ALNYLAM PHARMACEUTICALS, INC.-ALN-2025-003860

PATIENT

DRUGS (1)
  1. AMVUTTRA [Suspect]
     Active Substance: VUTRISIRAN
     Indication: Hereditary neuropathic amyloidosis
     Dosage: 25MG/0,5 ML, Q3M
     Route: 065
     Dates: start: 20250530, end: 20250530

REACTIONS (1)
  - Ventricular tachycardia [Unknown]
